FAERS Safety Report 14081740 (Version 1)
Quarter: 2017Q4

REPORT INFORMATION
  Report Type: Spontaneous
  Country: RO (occurrence: RO)
  Receive Date: 20171013
  Receipt Date: 20171013
  Transmission Date: 20180321
  Serious: Yes (Hospitalization)
  Sender: FDA-Public Use
  Company Number: RO-GLENMARK PHARMACEUTICALS-2017GMK029181

PATIENT
  Age: 66 Year
  Sex: Female

DRUGS (4)
  1. IMIQUIMOD. [Suspect]
     Active Substance: IMIQUIMOD
     Indication: SKIN LESION
     Dosage: UNK, AT BED TIME
     Route: 061
  2. NEBIVOLOL. [Suspect]
     Active Substance: NEBIVOLOL
     Indication: HYPERTENSION
     Dosage: 5 MG, OD
     Route: 065
  3. INDAPAMIDE. [Suspect]
     Active Substance: INDAPAMIDE
     Indication: HYPERTENSION
     Dosage: 1.5 MG, OD
     Route: 065
  4. THEOPHYLLINE [Concomitant]
     Active Substance: THEOPHYLLINE ANHYDROUS
     Indication: ASTHMA
     Dosage: 350 MG, OD
     Route: 065

REACTIONS (4)
  - Skin erosion [Unknown]
  - Hyperaemia [Unknown]
  - Self-medication [Unknown]
  - Blood pressure inadequately controlled [Unknown]
